FAERS Safety Report 5192193-6 (Version None)
Quarter: 2006Q4

REPORT INFORMATION
  Report Type: 
  Country: None (occurrence: None)
  Receive Date: 20061220
  Receipt Date: 20061204
  Transmission Date: 20070319
  Serious: Yes (Other)
  Sender: FDA-Public Use
  Company Number: DSA_61327_2006

PATIENT
  Age: 13 Year
  Sex: Female

DRUGS (1)
  1. DIASTAT [Suspect]
     Indication: CONVULSION
     Dosage: DF RC
     Dates: start: 20061204, end: 20061204

REACTIONS (4)
  - CONVULSION [None]
  - DRUG DISPENSING ERROR [None]
  - DRUG PRESCRIBING ERROR [None]
  - PHARMACEUTICAL PRODUCT COMPLAINT [None]
